FAERS Safety Report 6195626-1 (Version None)
Quarter: 2009Q2

REPORT INFORMATION
  Report Type: 
  Country: None (occurrence: None)
  Receive Date: 20090519
  Receipt Date: 20090508
  Transmission Date: 20091009
  Serious: Yes (Hospitalization)
  Sender: FDA-Public Use
  Company Number: US-BAXTER-2009BH008215

PATIENT
  Age: 51 Year
  Sex: Female

DRUGS (4)
  1. HEPARIN SODIUM INJECTION [Suspect]
     Indication: DRUG USE FOR UNKNOWN INDICATION
     Route: 042
     Dates: start: 20050801
  2. HEPARIN SODIUM INJECTION [Suspect]
     Route: 065
     Dates: start: 20060301
  3. HEPARIN SODIUM INJECTION [Suspect]
     Route: 065
     Dates: start: 20060701
  4. HEPARIN SODIUM INJECTION [Suspect]
     Route: 042
     Dates: start: 20070713, end: 20070713

REACTIONS (12)
  - ABDOMINAL PAIN [None]
  - ADVERSE DRUG REACTION [None]
  - ANXIETY [None]
  - BACK PAIN [None]
  - CHEST PAIN [None]
  - DIZZINESS [None]
  - DYSPNOEA [None]
  - MUSCLE SPASMS [None]
  - PALPITATIONS [None]
  - SKIN DISCOLOURATION [None]
  - SWELLING [None]
  - WEIGHT INCREASED [None]
